FAERS Safety Report 5725556-8 (Version None)
Quarter: 2008Q2

REPORT INFORMATION
  Report Type: 
  Country: None (occurrence: None)
  Receive Date: 20080501
  Receipt Date: 20080422
  Transmission Date: 20081010
  Serious: Yes (Other)
  Sender: FDA-Public Use
  Company Number: PHHY2008SI06318

PATIENT
  Age: 50 Year
  Sex: Female

DRUGS (3)
  1. EMSELEX EXTENDED RELEASE [Suspect]
     Indication: HYPERTONIC BLADDER
  2. BERODUAL [Concomitant]
  3. MEDROL [Concomitant]

REACTIONS (7)
  - ASTHMA [None]
  - CONSTIPATION [None]
  - DRY MOUTH [None]
  - DYSPNOEA [None]
  - HEADACHE [None]
  - MUCOUS MEMBRANE DISORDER [None]
  - SUFFOCATION FEELING [None]
